FAERS Safety Report 6015009-4 (Version None)
Quarter: 2008Q4

REPORT INFORMATION
  Report Type: 
  Country: None (occurrence: None)
  Receive Date: 20081220
  Receipt Date: 20081215
  Transmission Date: 20090506
  Serious: Yes (Hospitalization)
  Sender: FDA-Public Use
  Company Number: US-ASTRAZENECA-2008UW27949

PATIENT
  Age: 45 Year
  Sex: Female

DRUGS (2)
  1. SEROQUEL [Suspect]
     Route: 048
     Dates: start: 20080711
  2. DEPAKOTE [Suspect]

REACTIONS (4)
  - AMMONIA INCREASED [None]
  - HEPATOTOXICITY [None]
  - LIVER DISORDER [None]
  - PNEUMONIA [None]
